FAERS Safety Report 16321810 (Version 2)
Quarter: 2019Q2

REPORT INFORMATION
  Report Type: Report from Study
  Country: US (occurrence: US)
  Receive Date: 20190516
  Receipt Date: 20190618
  Transmission Date: 20190711
  Serious: Yes (Hospitalization, Other)
  Sender: FDA-Public Use
  Company Number: US-SHIRE-US201907932

PATIENT
  Age: 29 Year
  Sex: Male

DRUGS (5)
  1. GATTEX [Suspect]
     Active Substance: TEDUGLUTIDE\WATER
     Indication: GASTROINTESTINAL INFLAMMATION
     Dosage: 2.35 MILLIGRAM, 1X/DAY:QD
     Route: 058
     Dates: start: 20190108
  2. GATTEX [Suspect]
     Active Substance: TEDUGLUTIDE\WATER
     Indication: SHORT-BOWEL SYNDROME
  3. GATTEX [Suspect]
     Active Substance: TEDUGLUTIDE\WATER
     Indication: MALABSORPTION
     Dosage: 0.2250 UNK
     Route: 058
  4. GATTEX [Suspect]
     Active Substance: TEDUGLUTIDE\WATER
     Indication: COLITIS
     Dosage: 235 MICROLITER, 1X/DAY:QD
     Route: 058
     Dates: start: 20190110, end: 20190424
  5. GATTEX [Suspect]
     Active Substance: TEDUGLUTIDE\WATER
     Indication: DIARRHOEA

REACTIONS (10)
  - Vascular device infection [Unknown]
  - Headache [Unknown]
  - Nausea [Unknown]
  - Polyp [Not Recovered/Not Resolved]
  - Sepsis [Unknown]
  - Cough [Unknown]
  - Vomiting [Recovered/Resolved]
  - Weight decreased [Unknown]
  - Complication associated with device [Unknown]
  - Gastric ulcer [Unknown]

NARRATIVE: CASE EVENT DATE: 20190111
